FAERS Safety Report 14523063 (Version 1)
Quarter: 2018Q1

REPORT INFORMATION
  Report Type: Spontaneous
  Country: FR (occurrence: FR)
  Receive Date: 20180212
  Receipt Date: 20180212
  Transmission Date: 20180509
  Serious: Yes (Life-Threatening)
  Sender: FDA-Public Use
  Company Number: FR-BAUSCH-BL-2018-003355

PATIENT
  Age: 7 Year
  Sex: Male
  Weight: 25 kg

DRUGS (8)
  1. METHOTREXATE. [Suspect]
     Active Substance: METHOTREXATE
     Indication: BURKITT^S LYMPHOMA
     Dosage: INCONNUE
     Route: 042
  2. PREDNISOLONE. [Suspect]
     Active Substance: PREDNISOLONE
     Indication: BURKITT^S LYMPHOMA
     Dosage: INCONNUE
     Route: 048
     Dates: start: 20180108, end: 20180111
  3. DOXORUBICINE (CHLORHYDRATE DE) [Suspect]
     Active Substance: DOXORUBICIN
     Indication: BURKITT^S LYMPHOMA
     Dosage: INCONNUE; 55 MG IN TOTAL
     Route: 042
     Dates: start: 20180109, end: 20180109
  4. VINCRISTINE (SULPHATE) [Suspect]
     Active Substance: VINCRISTINE SULFATE
     Indication: BURKITT^S LYMPHOMA
     Dosage: INCONNUE ; 1.85 MG IN TOTAL
     Route: 042
     Dates: start: 20180108, end: 20180108
  5. CYTARABINE. [Suspect]
     Active Substance: CYTARABINE
     Indication: BURKITT^S LYMPHOMA
     Dosage: CYCLICAL
     Route: 038
     Dates: start: 20180109, end: 20180111
  6. METHOTREXATE. [Suspect]
     Active Substance: METHOTREXATE
     Dosage: INCONNUE ; CYCLICAL
     Route: 037
     Dates: start: 20180109, end: 20180111
  7. CYCLOPHOSPHAMIDE. [Suspect]
     Active Substance: CYCLOPHOSPHAMIDE
     Indication: BURKITT^S LYMPHOMA
     Dosage: INCONNUE ; CYCLICAL
     Route: 042
     Dates: start: 20180109, end: 20180111
  8. RITUXIMAB (MAMMAL/HAMSTER/CELLS CHO) [Suspect]
     Active Substance: RITUXIMAB
     Indication: BURKITT^S LYMPHOMA
     Dosage: CYCLICAL
     Route: 042
     Dates: start: 20180105, end: 20180107

REACTIONS (1)
  - Posterior reversible encephalopathy syndrome [Not Recovered/Not Resolved]

NARRATIVE: CASE EVENT DATE: 20180109
